FAERS Safety Report 25938667 (Version 1)
Quarter: 2025Q4

REPORT INFORMATION
  Report Type: Spontaneous
  Country: US (occurrence: US)
  Receive Date: 20251019
  Receipt Date: 20251019
  Transmission Date: 20260118
  Serious: No
  Sender: DR REDDYS
  Company Number: US-DRL-USA-USA/2025/10/015494

PATIENT
  Age: 32 Year
  Sex: Female

DRUGS (2)
  1. SIROLIMUS [Suspect]
     Active Substance: SIROLIMUS
     Indication: Product used for unknown indication
     Dosage: 2 MG ONCE DAILY
  2. SIROLIMUS [Suspect]
     Active Substance: SIROLIMUS
     Dosage: 10 MG ONCE DAILY

REACTIONS (1)
  - Exposure during pregnancy [Unknown]
